FAERS Safety Report 8670263 (Version 2)
Quarter: 2012Q4

REPORT INFORMATION
  Report Type: 
  Country: JP (occurrence: JP)
  Receive Date: 20120718
  Receipt Date: 20120910
  Transmission Date: 20130627
  Serious: Yes (Hospitalization)
  Sender: FDA-Public Use
  Company Number: JP-ABBOTT-12P-087-0955721-00

PATIENT
  Age: 42 Year
  Sex: Female

DRUGS (7)
  1. LEUPLIN [Suspect]
     Indication: UTERINE LEIOMYOMA
     Route: 058
     Dates: start: 20110822, end: 20120111
  2. LEUPLIN [Suspect]
     Indication: DYSMENORRHOEA
  3. LEUPLIN [Suspect]
     Indication: MENORRHAGIA
  4. UNSPECIFIED INGREDIENT [Suspect]
     Indication: UTERINE LEIOMYOMA
     Route: 048
     Dates: start: 20120615, end: 20120627
  5. UNSPECIFIED INGREDIENT [Suspect]
     Indication: MENORRHAGIA
  6. FERROMIA [Concomitant]
     Indication: ANAEMIA
     Route: 048
     Dates: start: 20110816, end: 20110914
  7. MUCOSTA [Concomitant]
     Indication: ABDOMINAL PAIN UPPER
     Route: 048
     Dates: start: 20110822, end: 20110912

REACTIONS (2)
  - Cerebral infarction [Recovered/Resolved with Sequelae]
  - Arterial thrombosis [None]
